FAERS Safety Report 6027110-X (Version None)
Quarter: 2009Q1

REPORT INFORMATION
  Report Type: 
  Country: None (occurrence: None)
  Receive Date: 20090102
  Receipt Date: 20090102
  Transmission Date: 20090719
  Serious: Yes (Life-Threatening, Hospitalization, Other)
  Sender: FDA-Public Use
  Company Number: None

PATIENT
  Age: 47 Year
  Sex: Female
  Weight: 90.7194 kg

DRUGS (2)
  1. EFFEXOR XR [Suspect]
     Indication: DEPRESSION
     Dosage: 300MG DAILY PO
     Route: 048
     Dates: start: 20070901, end: 20081101
  2. EFFEXOR XR [Suspect]
     Indication: DEPRESSION
     Dosage: 75MG DAILY PO
     Route: 048
     Dates: start: 20070901, end: 20081101

REACTIONS (3)
  - CONDITION AGGRAVATED [None]
  - DEPRESSION [None]
  - SUICIDAL IDEATION [None]
